FAERS Safety Report 9495357 (Version 2)
Quarter: 2013Q3

REPORT INFORMATION
  Report Type: Report from Study
  Country: DE (occurrence: DE)
  Receive Date: 20130903
  Receipt Date: 20130903
  Transmission Date: 20140515
  Serious: Yes (Other)
  Sender: FDA-Public Use
  Company Number: DE-CELGENEUS-062-C4047-12021119

PATIENT
  Age: 78 Year
  Sex: Female
  Weight: 84 kg

DRUGS (10)
  1. CC-4047 [Suspect]
     Indication: MYELOFIBROSIS
     Dosage: 2 MILLIGRAM
     Route: 048
     Dates: start: 20100630, end: 20110817
  2. CC-4047 [Suspect]
     Dosage: .5 MILLIGRAM
     Route: 048
     Dates: start: 20110819, end: 20120206
  3. CC-4047 [Suspect]
     Dosage: 2 MILLIGRAM
     Route: 048
     Dates: start: 20100630, end: 20110817
  4. PREDNISOLONE [Suspect]
     Indication: MYELOFIBROSIS
     Dosage: 2.5 MILLIGRAM
     Route: 065
     Dates: start: 20110706, end: 20110917
  5. ENALAPRIL [Concomitant]
     Indication: PRODUCT USED FOR UNKNOWN INDICATION
     Dosage: 10 MILLIGRAM
     Route: 065
  6. BISOPROLOL [Concomitant]
     Indication: PRODUCT USED FOR UNKNOWN INDICATION
     Dosage: 2.5 MILLIGRAM
     Route: 065
  7. CARBIMAZOL [Concomitant]
     Indication: PRODUCT USED FOR UNKNOWN INDICATION
     Dosage: 10 MILLIGRAM
     Route: 065
  8. ASA [Concomitant]
     Indication: PRODUCT USED FOR UNKNOWN INDICATION
     Dosage: 100 MILLIGRAM
     Route: 065
  9. AMLODIPINE [Concomitant]
     Indication: PRODUCT USED FOR UNKNOWN INDICATION
     Dosage: 5 MILLIGRAM
     Route: 065
  10. SULPIRIDE [Concomitant]
     Indication: PRODUCT USED FOR UNKNOWN INDICATION
     Dosage: 25 MILLIGRAM
     Route: 065

REACTIONS (1)
  - Invasive ductal breast carcinoma [Recovered/Resolved with Sequelae]
